FAERS Safety Report 5768303-6 (Version None)
Quarter: 2008Q2

REPORT INFORMATION
  Report Type: 
  Country: None (occurrence: None)
  Receive Date: 20080612
  Receipt Date: 20080506
  Transmission Date: 20081010
  Serious: No
  Sender: FDA-Public Use
  Company Number: PR-ABBOTT-08P-131-0450945-00

PATIENT
  Age: 36 Year
  Sex: Female

DRUGS (2)
  1. HUMIRA [Suspect]
     Indication: RHEUMATOID ARTHRITIS
     Dates: start: 20080423
  2. PREGABALIN [Concomitant]
     Indication: FIBROMYALGIA
     Route: 048

REACTIONS (4)
  - HEADACHE [None]
  - HOT FLUSH [None]
  - MYALGIA [None]
  - PHARYNGEAL INFLAMMATION [None]
